FAERS Safety Report 5756207-4 (Version None)
Quarter: 2008Q2

REPORT INFORMATION
  Report Type: 
  Country: None (occurrence: None)
  Receive Date: 20080602
  Receipt Date: 20080521
  Transmission Date: 20081010
  Serious: Yes (Life-Threatening, Other)
  Sender: FDA-Public Use
  Company Number: CA-PFIZER INC-2008031235

PATIENT
  Sex: Male
  Weight: 77.1 kg

DRUGS (6)
  1. CHANTIX [Suspect]
     Indication: NICOTINE DEPENDENCE
     Route: 048
     Dates: start: 20080102, end: 20080306
  2. CLONAZEPAM [Concomitant]
     Route: 048
  3. ACETYLSALICYLIC ACID SRT [Concomitant]
     Route: 048
  4. MICARDIS [Concomitant]
     Route: 048
  5. TAMBOCOR [Concomitant]
     Route: 048
  6. CIPROFLOXACIN HCL [Concomitant]
     Route: 048
     Dates: start: 20080205, end: 20080215

REACTIONS (3)
  - DEPRESSION [None]
  - HOMICIDAL IDEATION [None]
  - SUICIDAL IDEATION [None]
